FAERS Safety Report 23669580 (Version 1)
Quarter: 2024Q1

REPORT INFORMATION
  Report Type: Spontaneous
  Country: US (occurrence: None)
  Receive Date: 20240324
  Receipt Date: 20240324
  Transmission Date: 20240409
  Serious: No
  Sender: FDA-Public Use
  Company Number: None

PATIENT
  Age: 31 Year
  Sex: Female
  Weight: 56.25 kg

DRUGS (1)
  1. DUPILUMAB [Suspect]
     Active Substance: DUPILUMAB
     Dosage: OTHER QUANTITY : 1 INJECTION(S);?OTHER FREQUENCY : EVERY 14 DAYS;?
     Route: 058

REACTIONS (5)
  - Flushing [None]
  - Swelling [None]
  - Pruritus [None]
  - Burning sensation [None]
  - Flushing [None]

NARRATIVE: CASE EVENT DATE: 20240323
